FAERS Safety Report 5912748-8 (Version None)
Quarter: 2008Q4

REPORT INFORMATION
  Report Type: 
  Country: None (occurrence: None)
  Receive Date: 20081008
  Receipt Date: 20081003
  Transmission Date: 20090506
  Serious: Yes (Hospitalization, Other)
  Sender: FDA-Public Use
  Company Number: MY-ABBOTT-08P-101-0479942-00

PATIENT
  Age: 45 Year
  Sex: Male

DRUGS (3)
  1. EPILIM SYRUP [Suspect]
     Indication: EPILEPSY
     Route: 048
     Dates: start: 20060101
  2. PRIMAXIN [Concomitant]
     Indication: DRUG USE FOR UNKNOWN INDICATION
  3. DETROSE 5% WITH SODIUM CHLORIDE [Concomitant]
     Indication: DRUG USE FOR UNKNOWN INDICATION
     Route: 042

REACTIONS (3)
  - HYPERNATRAEMIA [None]
  - LOSS OF CONSCIOUSNESS [None]
  - THERMAL BURN [None]
